FAERS Safety Report 11857425 (Version 9)
Quarter: 2016Q4

REPORT INFORMATION
  Report Type: Report from Study
  Country: AU (occurrence: AU)
  Receive Date: 20151221
  Receipt Date: 20161017
  Transmission Date: 20170206
  Serious: Yes (Death, Hospitalization, Other)
  Sender: FDA-Public Use
  Company Number: PHHY2015AU163232

PATIENT
  Age: 73 Year
  Sex: Male
  Weight: 100 kg

DRUGS (2)
  1. SANDOSTATIN LAR DEPOT [Suspect]
     Active Substance: OCTREOTIDE ACETATE
     Indication: CARCINOID SYNDROME
     Dosage: 30 MG
     Route: 030
     Dates: start: 20150626
  2. SANDOSTATIN LAR DEPOT [Suspect]
     Active Substance: OCTREOTIDE ACETATE
     Dosage: 60 MG, QMO (4 WEEKLY)
     Route: 030

REACTIONS (16)
  - Malignant neoplasm progression [Recovering/Resolving]
  - Peritonitis [Recovering/Resolving]
  - Malabsorption [Not Recovered/Not Resolved]
  - Faecal volume increased [Not Recovered/Not Resolved]
  - Malaise [Not Recovered/Not Resolved]
  - Weight decreased [Not Recovered/Not Resolved]
  - Intestinal obstruction [Recovering/Resolving]
  - Confusional state [Unknown]
  - Dyspnoea [Unknown]
  - Death [Fatal]
  - Neoplasm progression [Recovering/Resolving]
  - Jaundice [Not Recovered/Not Resolved]
  - Feeding disorder [Unknown]
  - Liver function test abnormal [Not Recovered/Not Resolved]
  - Hepatic lesion [Unknown]
  - General physical health deterioration [Unknown]

NARRATIVE: CASE EVENT DATE: 20160922
